FAERS Safety Report 13645178 (Version 1)
Quarter: 2017Q2

REPORT INFORMATION
  Report Type: Spontaneous
  Country: US (occurrence: US)
  Receive Date: 20170612
  Receipt Date: 20170612
  Transmission Date: 20170830
  Serious: No
  Sender: FDA-Public Use
  Company Number: US-ROCHE-1303401

PATIENT
  Age: 85 Year
  Sex: Male

DRUGS (3)
  1. XELODA [Suspect]
     Active Substance: CAPECITABINE
     Dosage: PER DAY DIVIDED
     Route: 048
  2. XELODA [Suspect]
     Active Substance: CAPECITABINE
     Indication: OESOPHAGEAL CARCINOMA
     Dosage: 2 TABLETS FOR 21 DAYS ON, 7 DAYS OFF
     Route: 048
     Dates: start: 20130822
  3. XELODA [Suspect]
     Active Substance: CAPECITABINE
     Dosage: PER DAY DIVIDED
     Route: 048

REACTIONS (3)
  - Rhinorrhoea [Unknown]
  - Decreased appetite [Unknown]
  - Dizziness [Unknown]

NARRATIVE: CASE EVENT DATE: 20131108
